FAERS Safety Report 9398560 (Version 2)
Quarter: 2013Q3

REPORT INFORMATION
  Report Type: Spontaneous
  Country: US (occurrence: US)
  Receive Date: 20130712
  Receipt Date: 20130906
  Transmission Date: 20140515
  Serious: Yes (Other)
  Sender: FDA-Public Use
  Company Number: US-ELI_LILLY_AND_COMPANY-US201307000872

PATIENT
  Sex: Male

DRUGS (2)
  1. HUMULIN NPH [Suspect]
     Dosage: UNK
  2. INSULIN HUMAN [Suspect]
     Dosage: UNK

REACTIONS (3)
  - Transient ischaemic attack [Recovered/Resolved]
  - Myotonic dystrophy [Unknown]
  - Incorrect dose administered [Unknown]
